FAERS Safety Report 9419191 (Version 1)
Quarter: 2013Q3

REPORT INFORMATION
  Report Type: Spontaneous
  Country: US (occurrence: None)
  Receive Date: 20130722
  Receipt Date: 20130722
  Transmission Date: 20140515
  Serious: Yes (Hospitalization)
  Sender: FDA-Public Use
  Company Number: None

PATIENT
  Age: 86 Year
  Sex: Male
  Weight: 68.9 kg

DRUGS (1)
  1. DONEPEZIL [Suspect]
     Indication: MEMORY IMPAIRMENT
     Dosage: MG PO
     Route: 048
     Dates: start: 20130523, end: 20130524

REACTIONS (1)
  - Angioedema [None]
